FAERS Safety Report 25152304 (Version 1)
Quarter: 2025Q2

REPORT INFORMATION
  Report Type: Spontaneous
  Country: US (occurrence: US)
  Receive Date: 20250402
  Receipt Date: 20250402
  Transmission Date: 20250717
  Serious: Yes (Death, Other)
  Sender: AMGEN
  Company Number: US-AMGEN-USASP2025060066

PATIENT
  Sex: Male

DRUGS (3)
  1. PREDNISONE [Suspect]
     Active Substance: PREDNISONE
     Indication: Prostate cancer
     Dosage: 5 MILLIGRAM, BID
     Route: 048
  2. DOCETAXEL [Concomitant]
     Active Substance: DOCETAXEL
     Dosage: 75 MILLIGRAM/SQ. METER, Q3WK
     Route: 040
  3. PEMBROLIZUMAB [Concomitant]
     Active Substance: PEMBROLIZUMAB
     Dosage: 200 MILLIGRAM, Q3WK
     Route: 040

REACTIONS (29)
  - Death [Fatal]
  - Pneumonia [Fatal]
  - Pneumonitis [Fatal]
  - COVID-19 pneumonia [Fatal]
  - Pneumonia influenzal [Fatal]
  - Respiratory failure [Fatal]
  - Urosepsis [Fatal]
  - Clostridial sepsis [Fatal]
  - Febrile neutropenia [Fatal]
  - Abscess neck [Fatal]
  - Interstitial lung disease [Fatal]
  - Immune-mediated adverse reaction [Unknown]
  - Prostate cancer metastatic [Unknown]
  - Hypothyroidism [Unknown]
  - Adverse event [Unknown]
  - Alopecia [Unknown]
  - Diarrhoea [Unknown]
  - Fatigue [Unknown]
  - Peripheral sensory neuropathy [Unknown]
  - Asthenia [Unknown]
  - Nausea [Unknown]
  - Anaemia [Unknown]
  - Decreased appetite [Unknown]
  - Dysgeusia [Unknown]
  - Oedema peripheral [Unknown]
  - Constipation [Unknown]
  - Infusion related reaction [Unknown]
  - Skin reaction [Unknown]
  - Hypophysitis [Unknown]
